FAERS Safety Report 17699815 (Version 2)
Quarter: 2020Q4

REPORT INFORMATION
  Report Type: Spontaneous
  Country: US (occurrence: US)
  Receive Date: 20200423
  Receipt Date: 20201216
  Transmission Date: 20210113
  Serious: Yes (Other)
  Sender: FDA-Public Use
  Company Number: US-ASTRAZENECA-2020SE51751

PATIENT
  Sex: Male
  Weight: 93.9 kg

DRUGS (11)
  1. NEXIUM 24HR [Suspect]
     Active Substance: ESOMEPRAZOLE MAGNESIUM
     Indication: DYSPEPSIA
     Dosage: 20.0MG UNKNOWN
     Route: 048
  2. PREVACID 24 HR [Suspect]
     Active Substance: LANSOPRAZOLE
     Indication: FLATULENCE
     Dosage: 15.0MG UNKNOWN
     Route: 065
  3. PRILOSEC OTC [Suspect]
     Active Substance: OMEPRAZOLE MAGNESIUM
     Indication: DYSPEPSIA
     Dosage: 20.0MG UNKNOWN
     Route: 048
  4. PREVACID [Suspect]
     Active Substance: LANSOPRAZOLE
     Dosage: FOR VARIOUS DATES AND YEARS
     Route: 065
  5. NEXIUM 24HR [Suspect]
     Active Substance: ESOMEPRAZOLE MAGNESIUM
     Indication: DYSPEPSIA
     Dosage: 20.0MG UNKNOWN
     Route: 048
  6. PRILOSEC OTC [Suspect]
     Active Substance: OMEPRAZOLE MAGNESIUM
     Indication: FLATULENCE
     Dosage: 20.0MG UNKNOWN
     Route: 048
  7. NEXIUM 24HR [Suspect]
     Active Substance: ESOMEPRAZOLE MAGNESIUM
     Indication: FLATULENCE
     Dosage: 20.0MG UNKNOWN
     Route: 048
  8. PRILOSEC OTC [Suspect]
     Active Substance: OMEPRAZOLE MAGNESIUM
     Indication: DYSPEPSIA
     Dosage: 20.0MG UNKNOWN
     Route: 048
  9. NEXIUM [Suspect]
     Active Substance: ESOMEPRAZOLE MAGNESIUM
     Dosage: FOR VARIOUS DATES AND YEARS
     Route: 048
  10. PREVACID 24 HR [Suspect]
     Active Substance: LANSOPRAZOLE
     Indication: DYSPEPSIA
     Dosage: 15.0MG UNKNOWN
     Route: 065
  11. PREVACID 24 HR [Suspect]
     Active Substance: LANSOPRAZOLE
     Indication: DYSPEPSIA
     Dosage: 15.0MG UNKNOWN
     Route: 065

REACTIONS (3)
  - Rebound acid hypersecretion [Unknown]
  - Chronic kidney disease [Not Recovered/Not Resolved]
  - Renal failure [Not Recovered/Not Resolved]
